FAERS Safety Report 16976566 (Version 2)
Quarter: 2019Q4

REPORT INFORMATION
  Report Type: Spontaneous
  Country: FR (occurrence: FR)
  Receive Date: 20191030
  Receipt Date: 20191111
  Transmission Date: 20200122
  Serious: Yes (Hospitalization, Other)
  Sender: FDA-Public Use
  Company Number: FR-INDIVIOR US-INDV-122133-2019

PATIENT
  Age: 49 Year
  Sex: Male

DRUGS (11)
  1. METHADONE AP HP [Suspect]
     Active Substance: METHADONE HYDROCHLORIDE
     Indication: PRODUCT USED FOR UNKNOWN INDICATION
     Dosage: UNK
     Route: 065
  2. SERESTA [Suspect]
     Active Substance: OXAZEPAM
     Indication: PRODUCT USED FOR UNKNOWN INDICATION
     Dosage: 150 MG TO 750 MG PER DAY (3 TAB PER DAY WITH MISUSE UP TO 15 PER DAY)
     Route: 048
     Dates: start: 1990
  3. SUBUTEX [Suspect]
     Active Substance: BUPRENORPHINE HYDROCHLORIDE
     Dosage: 12MG, SEVERAL TIMES A DAY
     Route: 045
  4. SUBUTEX [Suspect]
     Active Substance: BUPRENORPHINE HYDROCHLORIDE
     Indication: PRODUCT USED FOR UNKNOWN INDICATION
     Dosage: 24 MILLIGRAM, UNKNOWN
     Route: 065
  5. SUBUTEX [Suspect]
     Active Substance: BUPRENORPHINE HYDROCHLORIDE
     Dosage: 12MG, SEVERAL TIMES A DAY
     Route: 051
  6. XANAX [Suspect]
     Active Substance: ALPRAZOLAM
     Indication: PRODUCT USED FOR UNKNOWN INDICATION
     Dosage: 0.5MG, 4 PER DAY WITH MISUSE
     Route: 048
     Dates: start: 1990
  7. NICOTIANA TABACUM [Suspect]
     Active Substance: TOBACCO LEAF
     Indication: TOBACCO USER
     Dosage: 30 PACK PER YEAR
     Route: 055
     Dates: start: 1983
  8. VENTOLIN [Concomitant]
     Active Substance: ALBUTEROL SULFATE
     Indication: PRODUCT USED FOR UNKNOWN INDICATION
     Dosage: 3 TO 4 PUFFS PER DAY
     Route: 055
  9. VALIUM [Suspect]
     Active Substance: DIAZEPAM
     Indication: PRODUCT USED FOR UNKNOWN INDICATION
     Dosage: 40 MG TO 400 MG / DAY (4 TAB PER DAY WITH MISUSE UP TO 10 PER DAY)
     Route: 048
     Dates: start: 1990
  10. ALCOHOL. [Suspect]
     Active Substance: ALCOHOL
     Indication: PRODUCT USED FOR UNKNOWN INDICATION
     Dosage: UNK
     Route: 065
  11. TERCIAN                            /00759301/ [Suspect]
     Active Substance: CYAMEMAZINE
     Indication: PRODUCT USED FOR UNKNOWN INDICATION
     Dosage: 2 TABLETS OF 25 MG IN THE EVENING
     Route: 065

REACTIONS (8)
  - Drug dependence [Recovering/Resolving]
  - Toxicity to various agents [Recovered/Resolved]
  - Inappropriate schedule of product administration [Unknown]
  - Intentional product misuse [Recovering/Resolving]
  - Alcohol abuse [Recovering/Resolving]
  - Intentional product use issue [Unknown]
  - Drug dependence [Recovering/Resolving]
  - Drug dependence [Recovering/Resolving]

NARRATIVE: CASE EVENT DATE: 1983
